FAERS Safety Report 6533052-3 (Version None)
Quarter: 2010Q1

REPORT INFORMATION
  Report Type: 
  Country: None (occurrence: None)
  Receive Date: 20100111
  Receipt Date: 20100105
  Transmission Date: 20100710
  Serious: Yes (Life-Threatening, Other)
  Sender: FDA-Public Use
  Company Number: GB-PFIZER INC-2009292846

PATIENT
  Age: 36 Year
  Sex: Female

DRUGS (2)
  1. PROSTIN E2 [Suspect]
     Indication: LABOUR INDUCTION
     Dosage: 3 MG, 1X/DAY
     Route: 067
     Dates: start: 20091005
  2. PROPESS [Suspect]
     Indication: LABOUR INDUCTION
     Dosage: 10 MG, UNK
     Route: 067
     Dates: start: 20091003, end: 20091004

REACTIONS (1)
  - POSTPARTUM HAEMORRHAGE [None]
